APPROVED DRUG PRODUCT: RIVASTIGMINE TARTRATE
Active Ingredient: RIVASTIGMINE TARTRATE
Strength: EQ 1.5MG BASE
Dosage Form/Route: CAPSULE;ORAL
Application: A203148 | Product #001 | TE Code: AB
Applicant: MACLEODS PHARMACEUTICALS LTD
Approved: Aug 22, 2014 | RLD: No | RS: No | Type: RX